FAERS Safety Report 4505395-6 (Version None)
Quarter: 2004Q4

REPORT INFORMATION
  Report Type: 
  Country: None (occurrence: None)
  Receive Date: 20041116
  Receipt Date: 20041103
  Transmission Date: 20050328
  Serious: Yes (Hospitalization)
  Sender: FDA-Public Use
  Company Number: S04-FRA-07538-01

PATIENT
  Age: 60 Year
  Sex: Female

DRUGS (2)
  1. EBIXA (MEMANTINE) [Suspect]
     Dosage: 10 MG QOD PO
     Route: 048
  2. OXAZEPAM [Concomitant]

REACTIONS (4)
  - GASTROOESOPHAGEAL REFLUX DISEASE [None]
  - HAEMATEMESIS [None]
  - MELAENA [None]
  - OESOPHAGITIS [None]
